FAERS Safety Report 4383577-4 (Version None)
Quarter: 2004Q2

REPORT INFORMATION
  Report Type: 
  Country: None (occurrence: None)
  Receive Date: 20040618
  Receipt Date: 20040610
  Transmission Date: 20050107
  Serious: Yes (Death)
  Sender: FDA-Public Use
  Company Number: BE-JNJFOC-20040505362

PATIENT
  Age: 7 Year
  Sex: Male

DRUGS (5)
  1. PROPULSID [Suspect]
     Indication: GASTROOESOPHAGEAL REFLUX DISEASE
     Dosage: 3.5 MG, 4 IN 1 DAY, ORAL
     Route: 048
     Dates: start: 20030718
  2. DEPAKENE [Concomitant]
  3. RIVOTRIL (DROPS) CLONAZEPAM [Concomitant]
  4. FRISIUM (CLOBAZAM) [Concomitant]
  5. LOSEC (OMEPRAZOLE) [Concomitant]

REACTIONS (4)
  - CEREBRAL ISCHAEMIA [None]
  - DEHYDRATION [None]
  - ENCEPHALOPATHY [None]
  - FOOD INTOLERANCE [None]
